FAERS Safety Report 26180151 (Version 2)
Quarter: 2025Q4

REPORT INFORMATION
  Report Type: Spontaneous
  Country: US (occurrence: US)
  Receive Date: 20251219
  Receipt Date: 20251222
  Transmission Date: 20260118
  Serious: No
  Sender: ABBVIE
  Company Number: US-ABBVIE-6599664

PATIENT
  Sex: Female

DRUGS (1)
  1. ARMOUR THYROID [Suspect]
     Active Substance: THYROID, PORCINE
     Indication: Product used for unknown indication
     Route: 048

REACTIONS (3)
  - Swelling face [Not Recovered/Not Resolved]
  - Eye swelling [Not Recovered/Not Resolved]
  - Off label use [Unknown]
